FAERS Safety Report 4609011-4 (Version None)
Quarter: 2005Q1

REPORT INFORMATION
  Report Type: 
  Country: None (occurrence: None)
  Receive Date: 20050311
  Receipt Date: 20050303
  Transmission Date: 20050727
  Serious: Yes (Other)
  Sender: FDA-Public Use
  Company Number: 2005040836

PATIENT
  Age: 62 Year
  Sex: Female
  Weight: 84.369 kg

DRUGS (9)
  1. LIPITOR [Suspect]
     Indication: BLOOD CHOLESTEROL INCREASED
     Dosage: 10 MG (10 MG, 1 IN 1 D) ORAL
     Route: 048
  2. SIMVASTATIN [Suspect]
     Indication: BLOOD CHOLESTEROL INCREASED
     Dosage: ORAL
     Route: 048
     Dates: start: 20041001, end: 20041001
  3. ACYCLOVIR [Suspect]
     Indication: HERPES ZOSTER
     Dosage: ORAL
     Route: 048
     Dates: start: 20040101, end: 20040101
  4. EZETIMIBE [Concomitant]
  5. HYDROCHLOROTHIAZIDE [Concomitant]
  6. AMLODIPINE BESYLATE [Concomitant]
  7. VALSARTAN [Concomitant]
  8. LEVOTHYROXINE [Concomitant]
  9. POTASSIUM CHLORIDE [Concomitant]

REACTIONS (15)
  - ABDOMINAL PAIN [None]
  - ABDOMINAL PAIN UPPER [None]
  - DEHYDRATION [None]
  - HEART RATE INCREASED [None]
  - HERPES ZOSTER [None]
  - LABORATORY TEST ABNORMAL [None]
  - LOSS OF CONSCIOUSNESS [None]
  - MEDICATION ERROR [None]
  - MUSCLE SPASMS [None]
  - PAIN [None]
  - PAIN IN EXTREMITY [None]
  - SOMNOLENCE [None]
  - STRESS [None]
  - VOMITING [None]
  - WEIGHT DECREASED [None]
